FAERS Safety Report 17540489 (Version 3)
Quarter: 2020Q1

REPORT INFORMATION
  Report Type: Spontaneous
  Country: DE (occurrence: DE)
  Receive Date: 20200313
  Receipt Date: 20200319
  Transmission Date: 20200409
  Serious: Yes (Life-Threatening, Hospitalization, Disabling, Congenital Anomaly, Other)
  Sender: FDA-Public Use
  Company Number: DE-PFIZER INC-2020109655

PATIENT
  Sex: Male

DRUGS (1)
  1. CYTOTEC [Suspect]
     Active Substance: MISOPROSTOL
     Indication: LABOUR INDUCTION
     Dosage: 100UG, 50 + 50 IN 9 HOURS
     Dates: start: 20091111, end: 20091111

REACTIONS (4)
  - Neonatal hypoxia [Unknown]
  - Foetal exposure during delivery [Unknown]
  - Multiple organ dysfunction syndrome [Unknown]
  - Disability [Recovered/Resolved with Sequelae]

NARRATIVE: CASE EVENT DATE: 20091111
